FAERS Safety Report 18887394 (Version 10)
Quarter: 2022Q1

REPORT INFORMATION
  Report Type: Spontaneous
  Country: GB (occurrence: None)
  Receive Date: 20210212
  Receipt Date: 20220131
  Transmission Date: 20220424
  Serious: Yes (Death, Life-Threatening, Hospitalization, Disabling, Other)
  Sender: FDA-Public Use
  Company Number: GB-KYOWAKIRIN-2020BKK015405AA

PATIENT
  Age: 5 Year
  Sex: Male
  Weight: 18 kg

DRUGS (34)
  1. CIPROFLOXACIN [Suspect]
     Active Substance: CIPROFLOXACIN
     Indication: Product used for unknown indication
     Dosage: UNKNOWN
     Route: 065
  2. MEROPENEM [Suspect]
     Active Substance: MEROPENEM
     Indication: Antibiotic therapy
     Dosage: UNKNOWN
     Route: 065
  3. AMOXICILLIN\CLAVULANATE POTASSIUM [Suspect]
     Active Substance: AMOXICILLIN\CLAVULANATE POTASSIUM
     Indication: Pneumonia
     Dosage: UNKNOWN
     Route: 065
     Dates: start: 20150611
  4. AMOXICILLIN\CLAVULANATE POTASSIUM [Suspect]
     Active Substance: AMOXICILLIN\CLAVULANATE POTASSIUM
     Dosage: UNKNOWN
     Route: 065
     Dates: start: 20160714, end: 20160720
  5. PENICILLIN G [Suspect]
     Active Substance: PENICILLIN G
     Indication: Product used for unknown indication
     Route: 065
  6. CEFUROXIME [Suspect]
     Active Substance: CEFUROXIME
     Indication: Antibiotic therapy
     Dosage: UNKNOWN
     Route: 042
  7. DEXTROSE [Suspect]
     Active Substance: DEXTROSE
     Indication: Pneumonia
     Dosage: UNKNOWN
     Route: 065
  8. TRISODIUM CITRATE DIHYDRATE [Suspect]
     Active Substance: TRISODIUM CITRATE DIHYDRATE
     Indication: Pneumonia
     Dosage: UNKNOWN
     Route: 065
  9. TRISODIUM CITRATE DIHYDRATE [Suspect]
     Active Substance: TRISODIUM CITRATE DIHYDRATE
     Indication: Pneumonia
     Dosage: UNKNOWN
     Route: 065
  10. POTASSIUM CHLORIDE [Suspect]
     Active Substance: POTASSIUM CHLORIDE
     Indication: Pneumonia
     Dosage: UNKNOWN
     Route: 065
  11. POTASSIUM CHLORIDE [Suspect]
     Active Substance: POTASSIUM CHLORIDE
     Indication: Pneumonia
     Dosage: UNKNOWN
     Route: 065
  12. SODIUM CHLORIDE [Suspect]
     Active Substance: SODIUM CHLORIDE
     Indication: Pneumonia
     Dosage: UNKNOWN
     Route: 065
  13. SODIUM CHLORIDE [Suspect]
     Active Substance: SODIUM CHLORIDE
     Indication: Pneumonia
     Dosage: UNKNOWN
     Route: 065
  14. FENTANYL [Suspect]
     Active Substance: FENTANYL
     Indication: Pneumococcal infection
     Dosage: UNKNOWN
     Route: 065
  15. FENTANYL [Suspect]
     Active Substance: FENTANYL
     Indication: Circulatory collapse
  16. FENTANYL [Suspect]
     Active Substance: FENTANYL
     Indication: Brain injury
  17. FENTANYL [Suspect]
     Active Substance: FENTANYL
     Indication: Cerebral ischaemia
  18. FENTANYL [Suspect]
     Active Substance: FENTANYL
     Indication: Pneumonia
  19. FENTANYL [Suspect]
     Active Substance: FENTANYL
     Indication: Intestinal ischaemia
  20. FENTANYL [Suspect]
     Active Substance: FENTANYL
     Indication: Respiratory tract infection bacterial
  21. FENTANYL [Suspect]
     Active Substance: FENTANYL
     Indication: Interstitial lung disease
  22. FENTANYL [Suspect]
     Active Substance: FENTANYL
     Indication: Pneumonia aspiration
  23. GENTAMICIN [Suspect]
     Active Substance: GENTAMICIN
     Indication: Antibiotic therapy
     Dosage: UNKNOWN
     Route: 042
  24. M-M-RVAXPRO [Suspect]
     Active Substance: MEASLES VIRUS STRAIN ENDERS^ ATTENUATED EDMONSTON LIVE ANTIGEN\MUMPS VIRUS STRAIN B LEVEL JERYL LYNN
     Indication: Pneumococcal sepsis
     Dosage: UNKNOWN
     Route: 065
  25. M-M-RVAXPRO [Suspect]
     Active Substance: MEASLES VIRUS STRAIN ENDERS^ ATTENUATED EDMONSTON LIVE ANTIGEN\MUMPS VIRUS STRAIN B LEVEL JERYL LYNN
     Indication: Immunisation
  26. UNSPECIFIED INGREDIENT [Suspect]
     Active Substance: UNSPECIFIED INGREDIENT
     Indication: Pneumococcal sepsis
     Dosage: UNKNOWN
     Route: 065
  27. UNSPECIFIED INGREDIENT [Suspect]
     Active Substance: UNSPECIFIED INGREDIENT
     Indication: Pneumococcal sepsis
     Dosage: UNKNOWN
     Route: 065
  28. UNSPECIFIED INGREDIENT [Suspect]
     Active Substance: UNSPECIFIED INGREDIENT
     Indication: Product used for unknown indication
     Dosage: UNKNOWN
     Route: 065
  29. PENICILLIN V [Suspect]
     Active Substance: PENICILLIN V
     Indication: Antibiotic therapy
     Dosage: UNKNOWN
     Route: 065
  30. PIPERACILLIN AND TAZOBACTAM [Suspect]
     Active Substance: PIPERACILLIN SODIUM\TAZOBACTAM SODIUM
     Indication: Vomiting
     Dosage: UNKNOWN
     Route: 065
  31. PIPERACILLIN AND TAZOBACTAM [Suspect]
     Active Substance: PIPERACILLIN SODIUM\TAZOBACTAM SODIUM
     Indication: Respiratory arrest
  32. PROPOFOL [Suspect]
     Active Substance: PROPOFOL
     Indication: Product used for unknown indication
     Dosage: UNKNOWN
     Route: 065
  33. PULMOZYME [Suspect]
     Active Substance: DORNASE ALFA
     Indication: Interstitial lung disease
     Dosage: UNKNOWN
     Route: 065
  34. VENTOLIN [Suspect]
     Active Substance: ALBUTEROL SULFATE
     Indication: Product used for unknown indication
     Dosage: UNKNOWN
     Route: 065

REACTIONS (40)
  - Intestinal ischaemia [Fatal]
  - Cerebral ischaemia [Fatal]
  - Brain injury [Fatal]
  - Circulatory collapse [Fatal]
  - Pneumonia [Fatal]
  - Respiratory arrest [Fatal]
  - Pneumonia aspiration [Fatal]
  - Disease complication [Fatal]
  - Muscular weakness [Fatal]
  - Pneumococcal sepsis [Fatal]
  - Respiratory tract infection bacterial [Fatal]
  - Interstitial lung disease [Fatal]
  - Dehydration [Fatal]
  - Spinal muscular atrophy [Fatal]
  - Tachypnoea [Fatal]
  - Dysphagia [Fatal]
  - Metabolic disorder [Fatal]
  - Motor dysfunction [Fatal]
  - Injury [Fatal]
  - Sputum increased [Fatal]
  - Atelectasis [Fatal]
  - Chest X-ray abnormal [Fatal]
  - Increased bronchial secretion [Fatal]
  - Lung consolidation [Fatal]
  - Condition aggravated [Fatal]
  - Inflammation [Fatal]
  - Resuscitation [Fatal]
  - Pyrexia [Fatal]
  - Diarrhoea [Fatal]
  - Vomiting [Fatal]
  - Dyspnoea [Fatal]
  - Malaise [Fatal]
  - Scoliosis [Fatal]
  - Ascites [Fatal]
  - Stoma closure [Fatal]
  - Demyelination [Fatal]
  - Motor neurone disease [Fatal]
  - Muscle atrophy [Fatal]
  - Bronchial disorder [Fatal]
  - Lung infiltration [Unknown]

NARRATIVE: CASE EVENT DATE: 20160620
